FAERS Safety Report 14540942 (Version 1)
Quarter: 2018Q1

REPORT INFORMATION
  Report Type: Spontaneous
  Country: JP (occurrence: JP)
  Receive Date: 20180216
  Receipt Date: 20180216
  Transmission Date: 20180509
  Serious: Yes (Hospitalization)
  Sender: FDA-Public Use
  Company Number: JP-OTSUKA-000427

PATIENT
  Age: 74 Year
  Sex: Female
  Weight: 53 kg

DRUGS (8)
  1. ABILIFY [Suspect]
     Active Substance: ARIPIPRAZOLE
     Dosage: 6 MG, TID
     Route: 048
     Dates: start: 20080116, end: 20080128
  2. BENZALIN [Concomitant]
     Active Substance: NITRAZEPAM
     Indication: PSYCHOTIC DISORDER
     Dosage: 5 MG, QD
     Route: 048
     Dates: start: 20080110, end: 20080319
  3. NORVASC [Concomitant]
     Active Substance: AMLODIPINE BESYLATE
     Indication: HYPERTENSION
     Dosage: 5 MG, QD
     Route: 048
  4. CORTRIL [Concomitant]
     Active Substance: HYDROCORTISONE
     Indication: HYPOPITUITARISM
     Dosage: 10 MG, BID
     Route: 048
  5. LEVOTOMIN [Concomitant]
     Active Substance: LEVOMEPROMAZINE
     Dosage: 5 MG, QD
     Route: 048
     Dates: start: 20080201
  6. LEVOTOMIN [Concomitant]
     Active Substance: LEVOMEPROMAZINE
     Indication: PSYCHOTIC DISORDER
     Dosage: 5 MG, QD
     Route: 048
     Dates: start: 20080116, end: 20080128
  7. ABILIFY [Suspect]
     Active Substance: ARIPIPRAZOLE
     Indication: PSYCHOTIC DISORDER
     Dosage: UNK
     Route: 065
  8. THYRADIN S [Concomitant]
     Active Substance: LEVOTHYROXINE SODIUM
     Indication: PSYCHOTIC DISORDER
     Dosage: 50 UG, QD
     Route: 048

REACTIONS (1)
  - Ventricular extrasystoles [Recovered/Resolved]

NARRATIVE: CASE EVENT DATE: 20080126
